FAERS Safety Report 5585653-7 (Version None)
Quarter: 2007Q4

REPORT INFORMATION
  Report Type: 
  Country: None (occurrence: None)
  Receive Date: 20071203
  Receipt Date: 20060905
  Transmission Date: 20080405
  Serious: Yes (Other)
  Sender: FDA-Public Use
  Company Number: 2007023455

PATIENT
  Sex: Male

DRUGS (1)
  1. ZYVOX [Suspect]
     Indication: INFECTION
     Dosage: 1200 MG (600 MG,2 IN 1 D),ORAL
     Route: 048

REACTIONS (1)
  - ANAEMIA [None]
